FAERS Safety Report 16902081 (Version 1)
Quarter: 2019Q4

REPORT INFORMATION
  Report Type: Spontaneous
  Country: NL (occurrence: NL)
  Receive Date: 20191010
  Receipt Date: 20191010
  Transmission Date: 20200122
  Serious: Yes (Other)
  Sender: FDA-Public Use
  Company Number: NL-TEVA-2019-NL-1118837

PATIENT
  Age: 75 Year
  Sex: Male
  Weight: 66 kg

DRUGS (3)
  1. BECLOMETASON NEUSSPRAY, 50 ?G/DOSIS (MICROGRAM PER DOSIS) [Suspect]
     Active Substance: BECLOMETHASONE DIPROPIONATE
     Indication: HEADACHE
     Dosage: 2; 1 DF
     Route: 065
     Dates: start: 20190817
  2. BECLOMETASON NEUSSPRAY, 50 ?G/DOSIS (MICROGRAM PER DOSIS) [Suspect]
     Active Substance: BECLOMETHASONE DIPROPIONATE
     Indication: NASOPHARYNGITIS
  3. TAMSULOSINE [Concomitant]
     Active Substance: TAMSULOSIN HYDROCHLORIDE

REACTIONS (2)
  - Deafness [Not Recovered/Not Resolved]
  - Tinnitus [Not Recovered/Not Resolved]

NARRATIVE: CASE EVENT DATE: 20190902
